FAERS Safety Report 24185622 (Version 1)
Quarter: 2024Q3

REPORT INFORMATION
  Report Type: Spontaneous
  Country: AU (occurrence: AU)
  Receive Date: 20240807
  Receipt Date: 20240807
  Transmission Date: 20241017
  Serious: Yes (Other)
  Sender: ELI LILLY AND CO
  Company Number: AU-ELI_LILLY_AND_COMPANY-AU202407017483

PATIENT
  Age: 23 Year
  Sex: Female

DRUGS (1)
  1. CYMBALTA [Suspect]
     Active Substance: DULOXETINE HYDROCHLORIDE
     Indication: Anxiety
     Dosage: UNK UNK, UNKNOWN
     Route: 065
     Dates: start: 2014, end: 2015

REACTIONS (4)
  - Brain fog [Not Recovered/Not Resolved]
  - Emotional poverty [Not Recovered/Not Resolved]
  - Inflammation [Not Recovered/Not Resolved]
  - Sexual dysfunction [Not Recovered/Not Resolved]

NARRATIVE: CASE EVENT DATE: 20150131
